FAERS Safety Report 6595285-X (Version None)
Quarter: 2010Q1

REPORT INFORMATION
  Report Type: 
  Country: None (occurrence: None)
  Receive Date: 20100212
  Receipt Date: 20100128
  Transmission Date: 20100710
  Serious: Yes (Hospitalization, Other)
  Sender: FDA-Public Use
  Company Number: TRP_06584_2009

PATIENT
  Sex: Female
  Weight: 78.5 kg

DRUGS (4)
  1. RIBASPHERE [Suspect]
     Indication: HEPATITIS C
     Dosage: (200 MG, ORAL)
     Route: 048
     Dates: start: 20091101
  2. PEGASYS [Suspect]
     Indication: HEPATITIS C
     Dosage: (180 ?G 1X/WEEK SUBCUTANEOUS)
     Route: 058
     Dates: start: 20090515
  3. COPEGUS [Suspect]
     Indication: HEPATITIS C
     Dosage: (600 MG BID ORAL)
     Route: 048
     Dates: start: 20091007, end: 20091105
  4. RIBAVIRIN [Suspect]
     Indication: HEPATITIS C
     Dosage: (200 MG, 1200 MG DAILY IN DIVIDED DOSES ORAL)
     Route: 048
     Dates: start: 20090515, end: 20090608

REACTIONS (2)
  - ANAEMIA [None]
  - WHITE BLOOD CELL COUNT DECREASED [None]
